FAERS Safety Report 16018534 (Version 1)
Quarter: 2019Q1

REPORT INFORMATION
  Report Type: Report from Study
  Country: HN (occurrence: HN)
  Receive Date: 20190228
  Receipt Date: 20190228
  Transmission Date: 20190418
  Serious: Yes (Other)
  Sender: FDA-Public Use
  Company Number: PHHY2019HN043160

PATIENT
  Age: 74 Year
  Sex: Female

DRUGS (2)
  1. VYMADA [Suspect]
     Active Substance: SACUBITRIL\VALSARTAN
     Indication: PRODUCT USED FOR UNKNOWN INDICATION
     Dosage: 200 MG, UNK
     Route: 065
  2. VYMADA [Suspect]
     Active Substance: SACUBITRIL\VALSARTAN
     Dosage: 50 MG, UNK
     Route: 065

REACTIONS (2)
  - Fatigue [Unknown]
  - Pericardial effusion [Unknown]
